FAERS Safety Report 26061077 (Version 2)
Quarter: 2025Q4

REPORT INFORMATION
  Report Type: Spontaneous
  Country: JP (occurrence: JP)
  Receive Date: 20251118
  Receipt Date: 20251215
  Transmission Date: 20260118
  Serious: No
  Sender: PFIZER
  Company Number: JP-PFIZER INC-PV202500134462

PATIENT
  Sex: Male

DRUGS (1)
  1. NGENLA [Suspect]
     Active Substance: SOMATROGON-GHLA
     Dosage: UNK
     Route: 058

REACTIONS (1)
  - Injection site pain [Unknown]
